FAERS Safety Report 20910582 (Version 1)
Quarter: 2022Q2

REPORT INFORMATION
  Report Type: Spontaneous
  Country: US (occurrence: None)
  Receive Date: 20220602
  Receipt Date: 20220602
  Transmission Date: 20220721
  Serious: Yes (Other)
  Sender: FDA-Public Use
  Company Number: None

PATIENT
  Age: 32 Year
  Sex: Female
  Weight: 76.5 kg

DRUGS (4)
  1. ALLERGY RELIEF (CETIRIZINE HYDROCHLORIDE) [Suspect]
     Active Substance: CETIRIZINE HYDROCHLORIDE
     Indication: Seasonal allergy
     Dosage: OTHER QUANTITY : 25 CAPSULE(S);?FREQUENCY : DAILY;?
     Route: 048
     Dates: start: 20220507, end: 20220530
  2. ALLERGY RELIEF (CETIRIZINE HYDROCHLORIDE) [Suspect]
     Active Substance: CETIRIZINE HYDROCHLORIDE
     Indication: Allergy to animal
  3. ADDERALL XR [Concomitant]
     Active Substance: AMPHETAMINE ASPARTATE\AMPHETAMINE SULFATE\DEXTROAMPHETAMINE SACCHARATE\DEXTROAMPHETAMINE SULFATE
  4. IC DEXTROAMHETAMINE 5 MG [Concomitant]

REACTIONS (7)
  - Pruritus [None]
  - Scratch [None]
  - Disturbance in attention [None]
  - Insomnia [None]
  - Haemorrhage [None]
  - Throat irritation [None]
  - Oral discomfort [None]

NARRATIVE: CASE EVENT DATE: 20220601
